FAERS Safety Report 9919154 (Version 2)
Quarter: 2014Q2

REPORT INFORMATION
  Report Type: Report from Study
  Country: GB (occurrence: GB)
  Receive Date: 20140224
  Receipt Date: 20140625
  Transmission Date: 20141212
  Serious: Yes (Hospitalization)
  Sender: FDA-Public Use
  Company Number: GB-AMGEN-GBRCT2014012548

PATIENT
  Age: 48 Year
  Sex: Male
  Weight: 54.8 kg

DRUGS (6)
  1. ETANERCEPT [Suspect]
     Indication: PRODUCT USED FOR UNKNOWN INDICATION
     Dosage: 25 MG, 2 TIMES/WK
     Route: 065
     Dates: start: 20080824, end: 20131223
  2. COD LIVER OIL [Concomitant]
     Dosage: UNK
     Dates: start: 20080923
  3. BETNOVATE [Concomitant]
     Dosage: UNK
     Dates: start: 20090909
  4. THIAMINE HYDROCHLORIDE [Concomitant]
     Dosage: UNK
     Dates: start: 20130813
  5. ISONIAZID [Concomitant]
     Dosage: UNK
     Dates: start: 20131024
  6. PYRIDOXINE [Concomitant]
     Dosage: UNK
     Dates: start: 20131113

REACTIONS (1)
  - Psoriasis [Recovered/Resolved]
